FAERS Safety Report 9221878 (Version 1)
Quarter: 2013Q2

REPORT INFORMATION
  Report Type: Spontaneous
  Country: US (occurrence: None)
  Receive Date: 20130410
  Receipt Date: 20130410
  Transmission Date: 20140414
  Serious: Yes (Death)
  Sender: FDA-Public Use
  Company Number: None

PATIENT
  Age: 82 Year
  Sex: Female

DRUGS (1)
  1. WARFARIN [Suspect]
     Indication: ATRIAL FIBRILLATION
     Dosage: 3 MG  PO DAILY?YEARS
     Route: 048

REACTIONS (5)
  - Mental status changes [None]
  - Pyrexia [None]
  - Hypotension [None]
  - Melaena [None]
  - Faeces discoloured [None]
